FAERS Safety Report 4531173-8 (Version None)
Quarter: 2004Q4

REPORT INFORMATION
  Report Type: 
  Country: None (occurrence: None)
  Receive Date: 20041216
  Receipt Date: 20041209
  Transmission Date: 20050328
  Serious: Yes (Death, Hospitalization, Other)
  Sender: FDA-Public Use
  Company Number: DE-2004-034830

PATIENT
  Age: 73 Year
  Sex: Male
  Weight: 80 kg

DRUGS (13)
  1. CAMPATH [Suspect]
     Indication: CHRONIC LYMPHOCYTIC LEUKAEMIA
     Dosage: 30 MG, UNK, SUBCUTANEOUS
     Route: 058
     Dates: start: 20040804, end: 20040811
  2. FLUDARABINE PHOSPHATE [Suspect]
     Indication: CHRONIC LYMPHOCYTIC LEUKAEMIA
     Dates: start: 20040401, end: 20040701
  3. PARACETAMOL [Concomitant]
  4. CLEMASTINE FUMARATE [Concomitant]
  5. SOLU-DECORTIN-H (PREDNISOLONE SODIUM SUCCINATE) [Concomitant]
  6. VALTREX [Concomitant]
  7. METOPROLOL TARTRATE [Concomitant]
  8. WOBENZYM (ENZYMES NOS) [Concomitant]
  9. ARANESP [Concomitant]
  10. NEULASTA [Concomitant]
  11. SULFAMETHOXAZOLE AND TRIMETHOPRIM [Concomitant]
  12. ACYCLOVIR [Concomitant]
  13. CYCLOPHOSPHAMIDE [Concomitant]

REACTIONS (12)
  - BONE MARROW TOXICITY [None]
  - DIARRHOEA [None]
  - ERYTHROPOIESIS ABNORMAL [None]
  - HYPERTENSION [None]
  - MYELODYSPLASTIC SYNDROME [None]
  - OESOPHAGEAL CANDIDIASIS [None]
  - PANCYTOPENIA [None]
  - PYREXIA [None]
  - REFUSAL OF TREATMENT BY PATIENT [None]
  - RENAL FAILURE [None]
  - TACHYCARDIA [None]
  - TUMOUR LYSIS SYNDROME [None]
